FAERS Safety Report 23227735 (Version 1)
Quarter: 2023Q4

REPORT INFORMATION
  Report Type: Report from Study
  Country: US (occurrence: US)
  Receive Date: 20231125
  Receipt Date: 20231125
  Transmission Date: 20240110
  Serious: No
  Sender: FDA-Public Use
  Company Number: US-002147023-NVSC2023US247746

PATIENT
  Sex: Female

DRUGS (1)
  1. COSENTYX [Suspect]
     Active Substance: SECUKINUMAB
     Indication: Psoriasis
     Route: 065

REACTIONS (8)
  - Arthralgia [Unknown]
  - Swelling [Unknown]
  - Drug ineffective [Unknown]
  - Psoriasis [Unknown]
  - Dry skin [Unknown]
  - Skin exfoliation [Unknown]
  - Skin lesion [Unknown]
  - Skin haemorrhage [Unknown]
